FAERS Safety Report 7691927-6 (Version None)
Quarter: 2011Q3

REPORT INFORMATION
  Report Type: 
  Country: None (occurrence: None)
  Receive Date: 20110818
  Receipt Date: 20110809
  Transmission Date: 20111222
  Serious: Yes (Hospitalization)
  Sender: FDA-Public Use
  Company Number: SE-ASTRAZENECA-2011SE47554

PATIENT
  Age: 80 Year
  Sex: Female

DRUGS (12)
  1. CITALOPRAM HYDROBROMIDE [Concomitant]
  2. MOVIPREP [Concomitant]
     Route: 048
  3. OMEPRAZOLE [Concomitant]
  4. LEVOTHYROXINE SODIUM [Concomitant]
  5. MORPHINE SULFATE [Concomitant]
  6. METOPROLOL [Suspect]
     Indication: ESSENTIAL HYPERTENSION
     Route: 048
     Dates: end: 20110616
  7. BEHEPAN [Concomitant]
  8. FUROSEMIDE [Suspect]
     Indication: ESSENTIAL HYPERTENSION
  9. ALVEDON [Concomitant]
  10. KALCIPOS-D FORTE [Concomitant]
     Dosage: 500 MG/800 IE
  11. ATACAND [Suspect]
     Indication: ESSENTIAL HYPERTENSION
     Route: 048
     Dates: end: 20110616
  12. CILAXORAL [Concomitant]
     Dosage: 7.5 MG/ML
     Route: 048

REACTIONS (6)
  - BRADYCARDIA [None]
  - ARRHYTHMIA [None]
  - HYPOTENSION [None]
  - ATRIOVENTRICULAR BLOCK [None]
  - DEHYDRATION [None]
  - SYNCOPE [None]
